FAERS Safety Report 22294307 (Version 3)
Quarter: 2023Q2

REPORT INFORMATION
  Report Type: Spontaneous
  Country: DE (occurrence: None)
  Receive Date: 20230508
  Receipt Date: 20230523
  Transmission Date: 20230721
  Serious: Yes (Hospitalization, Other)
  Sender: FDA-Public Use
  Company Number: 2023A101481

PATIENT
  Age: 62 Year
  Sex: Male

DRUGS (11)
  1. QUETIAPINE [Suspect]
     Active Substance: QUETIAPINE
     Indication: Product used for unknown indication
     Dosage: 50.0MG UNKNOWN
     Route: 048
     Dates: start: 20220616
  2. QUETIAPINE [Suspect]
     Active Substance: QUETIAPINE
     Indication: Dementia
     Dosage: 50.0MG UNKNOWN
     Route: 048
     Dates: start: 20220616
  3. QUETIAPINE [Suspect]
     Active Substance: QUETIAPINE
     Indication: Hallucination
     Dosage: 50.0MG UNKNOWN
     Route: 048
     Dates: start: 20220616
  4. QUETIAPINE [Suspect]
     Active Substance: QUETIAPINE
     Indication: Product used for unknown indication
     Dosage: 600.0MG UNKNOWN
     Route: 048
     Dates: start: 202209, end: 202301
  5. QUETIAPINE [Suspect]
     Active Substance: QUETIAPINE
     Indication: Dementia
     Dosage: 600.0MG UNKNOWN
     Route: 048
     Dates: start: 202209, end: 202301
  6. QUETIAPINE [Suspect]
     Active Substance: QUETIAPINE
     Indication: Hallucination
     Dosage: 600.0MG UNKNOWN
     Route: 048
     Dates: start: 202209, end: 202301
  7. QUETIAPINE [Suspect]
     Active Substance: QUETIAPINE
     Indication: Product used for unknown indication
     Dosage: FOR 4 DAYS/ 3 TIMES A DAY (25MG - 25MG - 75MG)25.0MG UNKNOWN
     Route: 048
     Dates: start: 202304
  8. QUETIAPINE [Suspect]
     Active Substance: QUETIAPINE
     Indication: Dementia
     Dosage: FOR 4 DAYS/ 3 TIMES A DAY (25MG - 25MG - 75MG)25.0MG UNKNOWN
     Route: 048
     Dates: start: 202304
  9. QUETIAPINE [Suspect]
     Active Substance: QUETIAPINE
     Indication: Hallucination
     Dosage: FOR 4 DAYS/ 3 TIMES A DAY (25MG - 25MG - 75MG)25.0MG UNKNOWN
     Route: 048
     Dates: start: 202304
  10. CLOZAPINE [Suspect]
     Active Substance: CLOZAPINE
     Indication: Product used for unknown indication
  11. DEXAMETHASONE [Suspect]
     Active Substance: DEXAMETHASONE
     Indication: Product used for unknown indication
     Dates: start: 20230313

REACTIONS (5)
  - Epilepsy [Unknown]
  - Secretion discharge [Recovering/Resolving]
  - Pyrexia [Recovered/Resolved]
  - Muscle twitching [Recovering/Resolving]
  - Drug ineffective [Unknown]

NARRATIVE: CASE EVENT DATE: 20221214
